FAERS Safety Report 5061403-8 (Version None)
Quarter: 2006Q3

REPORT INFORMATION
  Report Type: 
  Country: None (occurrence: None)
  Receive Date: 20060719
  Receipt Date: 20060719
  Transmission Date: 20061208
  Serious: Yes (Hospitalization)
  Sender: FDA-Public Use
  Company Number: None

PATIENT
  Age: 83 Year
  Sex: Male

DRUGS (6)
  1. HUMULIN 70/30 [Suspect]
     Indication: DIABETES MELLITUS INSULIN-DEPENDENT
     Dosage: 8 UNITS BID
     Dates: start: 20060421
  2. ASPIRIN [Concomitant]
  3. REGULAR INSULIN [Concomitant]
  4. LANSOPRAZOLE [Concomitant]
  5. FINASTERIDE [Concomitant]
  6. VITAMIN E [Concomitant]

REACTIONS (1)
  - HYPOGLYCAEMIA [None]
